FAERS Safety Report 20763335 (Version 4)
Quarter: 2022Q3

REPORT INFORMATION
  Report Type: Spontaneous
  Country: US (occurrence: US)
  Receive Date: 20220428
  Receipt Date: 20220930
  Transmission Date: 20221026
  Serious: No
  Sender: FDA-Public Use
  Company Number: US-PFIZER INC-202200494112

PATIENT
  Age: 63 Year
  Sex: Female

DRUGS (2)
  1. IBRANCE [Suspect]
     Active Substance: PALBOCICLIB
     Indication: Breast cancer female
     Dosage: UNK
     Dates: start: 20220218
  2. IBRANCE [Suspect]
     Active Substance: PALBOCICLIB
     Dosage: TAKE 1 TABLET DAILY FOR 21 DAYS ON, THEN STOP FOR 7 DAYS
     Route: 048
     Dates: start: 20220721

REACTIONS (7)
  - Hot flush [Unknown]
  - Diarrhoea [Unknown]
  - Epistaxis [Recovering/Resolving]
  - Constipation [Unknown]
  - Dry skin [Unknown]
  - Stomatitis [Unknown]
  - Alopecia [Unknown]

NARRATIVE: CASE EVENT DATE: 20220101
